FAERS Safety Report 18665750 (Version 1)
Quarter: 2020Q4

REPORT INFORMATION
  Report Type: Spontaneous
  Country: FR (occurrence: FR)
  Receive Date: 20201226
  Receipt Date: 20201226
  Transmission Date: 20210114
  Serious: Yes (Other)
  Sender: FDA-Public Use
  Company Number: FR-ACCORD-212388

PATIENT
  Age: 58 Year
  Sex: Female
  Weight: 116.5 kg

DRUGS (7)
  1. ALPRAZOLAM. [Interacting]
     Active Substance: ALPRAZOLAM
     Indication: ANXIETY
     Route: 048
     Dates: end: 20201104
  2. TACROLIMUS. [Suspect]
     Active Substance: TACROLIMUS
     Indication: PROPHYLAXIS AGAINST TRANSPLANT REJECTION
     Route: 048
     Dates: start: 20201106
  3. KETAMINE RENAUDIN [Interacting]
     Active Substance: KETAMINE
     Indication: ANALGESIC INTERVENTION SUPPORTIVE THERAPY
     Route: 041
     Dates: start: 20201105, end: 20201109
  4. VALGANCICLOVIR ARROW [Interacting]
     Active Substance: VALGANCICLOVIR HYDROCHLORIDE
     Indication: ANTIVIRAL PROPHYLAXIS
     Route: 048
     Dates: start: 20201106
  5. TOPALGIC [TRAMADOL] [Interacting]
     Active Substance: TRAMADOL
     Indication: ANALGESIC INTERVENTION SUPPORTIVE THERAPY
     Route: 041
     Dates: start: 20201105, end: 20201108
  6. PIPERACILLIN PANPHARMA [Interacting]
     Active Substance: PIPERACILLIN
     Indication: ANTIBIOTIC PROPHYLAXIS
     Route: 041
     Dates: start: 20201105, end: 20201108
  7. NEFOPAM MEDISOL [Interacting]
     Active Substance: NEFOPAM HYDROCHLORIDE
     Indication: ANALGESIC INTERVENTION SUPPORTIVE THERAPY
     Route: 041
     Dates: start: 20201105, end: 20201108

REACTIONS (2)
  - Drug interaction [Unknown]
  - Tonic clonic movements [Recovered/Resolved]

NARRATIVE: CASE EVENT DATE: 20201108
